FAERS Safety Report 21603043 (Version 1)
Quarter: 2022Q4

REPORT INFORMATION
  Report Type: Spontaneous
  Country: US (occurrence: US)
  Receive Date: 20221116
  Receipt Date: 20221116
  Transmission Date: 20230113
  Serious: No
  Sender: FDA-Public Use
  Company Number: US-PERRIGO-21US029480

PATIENT
  Age: 76 Year
  Sex: Male
  Weight: 104.31 kg

DRUGS (3)
  1. POLYETHYLENE GLYCOL 3350 [Suspect]
     Active Substance: POLYETHYLENE GLYCOL 3350
     Indication: Bowel preparation
     Dosage: 17G, REPEATED UNTIL BOTTLE IS GONE
     Route: 048
     Dates: start: 20211012
  2. SENOKOT [Concomitant]
     Active Substance: SENNOSIDES
     Indication: Bowel preparation
     Dosage: UNK
     Route: 065
     Dates: start: 20210828
  3. LISINOPRIL [Concomitant]
     Active Substance: LISINOPRIL
     Indication: Bowel preparation
     Dosage: UNK
     Route: 065

REACTIONS (2)
  - Drug ineffective for unapproved indication [Unknown]
  - Overdose [Unknown]

NARRATIVE: CASE EVENT DATE: 20211012
